FAERS Safety Report 12280957 (Version 1)
Quarter: 2016Q2

REPORT INFORMATION
  Report Type: Spontaneous
  Country: US (occurrence: US)
  Receive Date: 20160419
  Receipt Date: 20160419
  Transmission Date: 20160815
  Serious: Yes (Other)
  Sender: FDA-Public Use
  Company Number: US-BAUSCH-BL-2016-008814

PATIENT
  Age: 80 Year
  Sex: Female

DRUGS (3)
  1. PREDNISONE. [Concomitant]
     Active Substance: PREDNISONE
     Indication: PRODUCT USED FOR UNKNOWN INDICATION
  2. ALBUTEROL. [Suspect]
     Active Substance: ALBUTEROL
     Indication: ANXIETY
     Dosage: NEBULIZER
     Route: 065
  3. ALBUTEROL. [Suspect]
     Active Substance: ALBUTEROL
     Dosage: DOUBLED DOSE
     Route: 065

REACTIONS (1)
  - Stress cardiomyopathy [Recovered/Resolved]
